FAERS Safety Report 10390976 (Version 2)
Quarter: 2014Q3

REPORT INFORMATION
  Report Type: Spontaneous
  Country: US (occurrence: US)
  Receive Date: 20140818
  Receipt Date: 20140818
  Transmission Date: 20150326
  Serious: Yes (Hospitalization, Disabling, Other)
  Sender: FDA-Public Use
  Company Number: US-009507513-2010SP025276

PATIENT
  Age: 44 Year
  Sex: Female
  Weight: 61.24 kg

DRUGS (5)
  1. NUVARING [Suspect]
     Active Substance: ETHINYL ESTRADIOL\ETONOGESTREL
     Indication: MENSTRUAL CYCLE MANAGEMENT
  2. PAXIL [Concomitant]
     Active Substance: PAROXETINE HYDROCHLORIDE
     Indication: DEPRESSION
     Dosage: 5 MG, QD
  3. NUVARING [Suspect]
     Active Substance: ETHINYL ESTRADIOL\ETONOGESTREL
     Indication: CONTRACEPTION
     Dosage: UNK UNK, UNKNOWN
     Route: 067
     Dates: start: 200610, end: 20080430
  4. ZYRTEC [Concomitant]
     Active Substance: CETIRIZINE HYDROCHLORIDE
     Indication: HYPERSENSITIVITY
     Dosage: 10 MG, QD
     Dates: start: 2005
  5. SINGULAIR [Concomitant]
     Active Substance: MONTELUKAST SODIUM
     Indication: HYPERSENSITIVITY
     Dosage: 10 MG, QD
     Dates: start: 2005

REACTIONS (16)
  - Hypercoagulation [Unknown]
  - Ovarian cyst [Unknown]
  - Affective disorder [Unknown]
  - Stress fracture [Recovered/Resolved]
  - Off label use [Unknown]
  - Smear cervix abnormal [Unknown]
  - Atelectasis [Unknown]
  - Pulmonary embolism [Recovered/Resolved]
  - Hypertension [Unknown]
  - Diastolic dysfunction [Unknown]
  - Cardiomegaly [Unknown]
  - Post-traumatic stress disorder [Unknown]
  - Pleurisy [Unknown]
  - Heart rate irregular [Unknown]
  - Uterine leiomyoma [Unknown]
  - Papilloma viral infection [Unknown]

NARRATIVE: CASE EVENT DATE: 20070914
